FAERS Safety Report 4389371-2 (Version None)
Quarter: 2004Q2

REPORT INFORMATION
  Report Type: 
  Country: None (occurrence: None)
  Receive Date: 20040630
  Receipt Date: 20040617
  Transmission Date: 20050107
  Serious: Yes (Hospitalization)
  Sender: FDA-Public Use
  Company Number: 2004220141FR

PATIENT
  Age: 47 Year
  Sex: Female

DRUGS (16)
  1. DOXORUBICIN HCL [Suspect]
     Indication: NON-HODGKIN'S LYMPHOMA
     Dosage: 160 MG, CYCLIC, IV
     Route: 042
     Dates: start: 20040501, end: 20040526
  2. VINCRISTINE SULFATE [Suspect]
     Indication: NON-HODGKIN'S LYMPHOMA
     Dosage: 3.4 MG, CYCLIC, IV
     Route: 042
     Dates: start: 20040501, end: 20040526
  3. CYCLOPHOSPHAMIDE [Suspect]
     Indication: NON-HODGKIN'S LYMPHOMA
     Dosage: ,CYCLIC,IV/1200 MG,BID,IV
     Route: 042
     Dates: start: 20040501
  4. CYCLOPHOSPHAMIDE [Suspect]
     Indication: NON-HODGKIN'S LYMPHOMA
     Dosage: ,CYCLIC,IV/1200 MG,BID,IV
     Route: 042
     Dates: start: 20040526
  5. UROMITEXAN [Concomitant]
  6. CARDIOXANE [Concomitant]
  7. TARGOCID [Concomitant]
  8. DIFFU K [Concomitant]
  9. VALACYCLOVIR HCL [Concomitant]
  10. LEXOMIL [Concomitant]
  11. FLAGYL [Concomitant]
  12. SPASFON (PHLOROGLUCINOL, TRIMETHYLPHLOROGLUCINOL) [Concomitant]
  13. SOLU-MEDROL [Concomitant]
  14. POLARAMINE [Concomitant]
  15. DAFALGAN [Concomitant]
  16. MABCAMPATH [Concomitant]

REACTIONS (5)
  - CYTOMEGALOVIRUS INFECTION [None]
  - HAEMOGLOBIN DECREASED [None]
  - MYOSITIS [None]
  - PLATELET COUNT DECREASED [None]
  - RHABDOMYOLYSIS [None]
